FAERS Safety Report 9831180 (Version 1)
Quarter: 2014Q1

REPORT INFORMATION
  Report Type: Report from Study
  Country: US (occurrence: US)
  Receive Date: 20140121
  Receipt Date: 20140121
  Transmission Date: 20141002
  Serious: Yes (Death)
  Sender: FDA-Public Use
  Company Number: US-ROCHE-1334073

PATIENT
  Sex: Female

DRUGS (7)
  1. AVASTIN [Suspect]
     Indication: OVARIAN CANCER
     Dosage: STARTED THERAPY ON 17/MAR/2011.
     Route: 042
  2. AVASTIN [Suspect]
     Indication: BREAST CANCER
     Route: 042
  3. AVASTIN [Suspect]
     Indication: METASTASES TO BONE
     Dosage: ON 31/MAR/2011, 28/APR/2011, 20/JUN/2011, 05/JUL/2011, 19/JUL/2011, 22/AUG/2011, 05/AUG/2011, 09/SEP
     Route: 042
  4. NEULASTA [Concomitant]
     Route: 030
  5. COMPAZINE [Concomitant]
     Dosage: 28/AUG/2011
     Route: 048
  6. AREDIA [Concomitant]
     Dosage: 23/JUN/2011
     Route: 040
  7. COUMADIN [Concomitant]
     Dosage: 09/SEP/2011
     Route: 065

REACTIONS (9)
  - Death [Fatal]
  - Fatigue [Unknown]
  - Nausea [Unknown]
  - Asthenia [Unknown]
  - Diarrhoea [Unknown]
  - Abdominal pain [Unknown]
  - Feeling hot [Unknown]
  - Infection [Unknown]
  - Off label use [Unknown]
